FAERS Safety Report 8586845-5 (Version None)
Quarter: 2012Q3

REPORT INFORMATION
  Report Type: 
  Country: None (occurrence: None)
  Receive Date: 20120810
  Receipt Date: 20120717
  Transmission Date: 20120928
  Serious: No
  Sender: FDA-Public Use
  Company Number: US-MYLANLABS-2012S1014501

PATIENT
  Age: 48 Year
  Sex: Male
  Weight: 63.5 kg

DRUGS (5)
  1. CYMBALTA [Concomitant]
     Indication: DEPRESSION
     Route: 048
  2. POTASSIUM [Concomitant]
     Route: 048
  3. ATENOLOL [Concomitant]
     Indication: BLOOD PRESSURE INCREASED
     Route: 048
  4. ROXICODONE [Concomitant]
     Indication: PAIN
     Route: 048
  5. MORPHINE SULFATE [Suspect]
     Indication: BACK PAIN
     Route: 048
     Dates: start: 20120501

REACTIONS (2)
  - PAIN [None]
  - DRUG EFFECT DECREASED [None]
